FAERS Safety Report 5856681-9 (Version None)
Quarter: 2008Q3

REPORT INFORMATION
  Report Type: 
  Country: None (occurrence: None)
  Receive Date: 20080825
  Receipt Date: 20080814
  Transmission Date: 20090109
  Serious: Yes (Hospitalization, Other)
  Sender: FDA-Public Use
  Company Number: NL-PFIZER INC-2008068599

PATIENT
  Sex: Female

DRUGS (1)
  1. ARTHROTEC [Suspect]
     Indication: ARTHRALGIA
     Dosage: TEXT:75 MG
     Route: 048
     Dates: start: 20080729, end: 20080729

REACTIONS (1)
  - ANAPHYLACTIC REACTION [None]
